FAERS Safety Report 20584279 (Version 1)
Quarter: 2022Q1

REPORT INFORMATION
  Report Type: Spontaneous
  Country: None (occurrence: CA)
  Receive Date: 20220311
  Receipt Date: 20220311
  Transmission Date: 20220423
  Serious: Yes (Hospitalization, Other)
  Sender: FDA-Public Use
  Company Number: CA-B.Braun Medical Inc.-2126688

PATIENT
  Age: 36 Year
  Sex: Female

DRUGS (19)
  1. LACTATED RINGERS SOLUTION [Suspect]
     Active Substance: CALCIUM CHLORIDE\POTASSIUM CHLORIDE\SODIUM CHLORIDE\SODIUM LACTATE
  2. ASPIRIN [Suspect]
     Active Substance: ASPIRIN
  3. AZATHIOPRINE [Suspect]
     Active Substance: AZATHIOPRINE
  4. BUPIVACAINE HYDROCHLORIDE [Suspect]
     Active Substance: BUPIVACAINE HYDROCHLORIDE
  5. CARBETOCIN [Suspect]
     Active Substance: CARBETOCIN
  6. EPINEPHRINE [Suspect]
     Active Substance: EPINEPHRINE
  7. ESCITALOPRAM [Suspect]
     Active Substance: ESCITALOPRAM OXALATE
  8. FENTANYL CITRATE [Suspect]
     Active Substance: FENTANYL CITRATE
  9. LACTATED RINGERS SOLUTION [Suspect]
     Active Substance: CALCIUM CHLORIDE\POTASSIUM CHLORIDE\SODIUM CHLORIDE\SODIUM LACTATE
  10. LANSOPRAZOLE [Suspect]
     Active Substance: LANSOPRAZOLE
  11. LIDOCAINE [Suspect]
     Active Substance: LIDOCAINE
  12. METHYLDOPA [Suspect]
     Active Substance: METHYLDOPA
  13. MORPHINE SULFATE [Suspect]
     Active Substance: MORPHINE SULFATE
  14. PHENYLEPHRINE HYDROCHLORIDE [Suspect]
     Active Substance: PHENYLEPHRINE HYDROCHLORIDE
  15. ALBUTEROL [Suspect]
     Active Substance: ALBUTEROL
  16. TACROLIMUS [Suspect]
     Active Substance: TACROLIMUS
  17. TINZAPARIN [Suspect]
     Active Substance: TINZAPARIN
  18. LIDOCAINE [Concomitant]
     Active Substance: LIDOCAINE
  19. NOREPINEPHRINE [Suspect]
     Active Substance: NOREPINEPHRINE

REACTIONS (3)
  - Anxiety [None]
  - Dyspnoea [None]
  - Maternal exposure during pregnancy [None]
